FAERS Safety Report 9274988 (Version 1)
Quarter: 2013Q2

REPORT INFORMATION
  Report Type: Spontaneous
  Country: US (occurrence: None)
  Receive Date: 20130501
  Receipt Date: 20130501
  Transmission Date: 20140414
  Serious: Yes (Life-Threatening, Hospitalization, Other)
  Sender: FDA-Public Use
  Company Number: None

PATIENT
  Age: 41 Year
  Sex: Female
  Weight: 102.06 kg

DRUGS (1)
  1. NALTREXONE [Suspect]
     Indication: FIBROMYALGIA
     Dosage: 1 YEAR 5 MG +1 WEEK 10 MG
     Route: 048

REACTIONS (3)
  - Drug hypersensitivity [None]
  - Anxiety [None]
  - No therapeutic response [None]
